FAERS Safety Report 5465562-4 (Version None)
Quarter: 2007Q3

REPORT INFORMATION
  Report Type: 
  Country: None (occurrence: None)
  Receive Date: 20070919
  Receipt Date: 20070905
  Transmission Date: 20080115
  Serious: Yes (Other)
  Sender: FDA-Public Use
  Company Number: B0487373A

PATIENT

DRUGS (3)
  1. TOPOTECAN HYDROCHLORIDE INFUSION (TOPOTECAN) (GENERIC) [Suspect]
     Indication: NEPHROBLASTOMA
     Dosage: INTRAVENOUS
     Route: 042
  2. NEUPOGEN [Concomitant]
  3. PENTAMIDINE ISETHIONATE [Concomitant]

REACTIONS (2)
  - HAEMORRHAGIC STROKE [None]
  - METASTASES TO CENTRAL NERVOUS SYSTEM [None]
